FAERS Safety Report 7421165-3 (Version None)
Quarter: 2011Q2

REPORT INFORMATION
  Report Type: 
  Country: None (occurrence: None)
  Receive Date: 20110418
  Receipt Date: 20110416
  Transmission Date: 20111010
  Serious: No
  Sender: FDA-Public Use
  Company Number: US-PFIZER INC-2011083684

PATIENT
  Sex: Male
  Weight: 72.6 kg

DRUGS (5)
  1. BENICAR [Concomitant]
     Indication: CORONARY ARTERY DISEASE
     Dosage: UNK
  2. COREG [Concomitant]
     Indication: CORONARY ARTERY DISEASE
     Dosage: UNK
  3. LIPITOR [Concomitant]
     Indication: BLOOD CHOLESTEROL INCREASED
     Dosage: UNK
  4. LYRICA [Suspect]
     Indication: PAIN
     Dosage: 50 MG, 2X/DAY
     Route: 048
     Dates: start: 20110408, end: 20110401
  5. ACETYLSALICYLIC ACID [Concomitant]
     Dosage: UNK

REACTIONS (1)
  - VISION BLURRED [None]
